FAERS Safety Report 15242906 (Version 1)
Quarter: 2018Q3

REPORT INFORMATION
  Report Type: Other
  Country: US (occurrence: US)
  Receive Date: 20180806
  Receipt Date: 20180806
  Transmission Date: 20181010
  Serious: Yes (Life-Threatening, Other)
  Sender: FDA-Public Use
  Company Number: US-MSN LABORATORIES PRIVATE LIMITED-2053263

PATIENT
  Age: 61 Year
  Sex: Female

DRUGS (1)
  1. MOXIFLOXACIN HYDROCHLORIDE. [Suspect]
     Active Substance: MOXIFLOXACIN HYDROCHLORIDE
     Indication: INFLUENZA LIKE ILLNESS
     Route: 065

REACTIONS (3)
  - Product use in unapproved indication [Unknown]
  - Toxic epidermal necrolysis [Recovering/Resolving]
  - Multiple organ dysfunction syndrome [Recovering/Resolving]
